FAERS Safety Report 25825929 (Version 4)
Quarter: 2025Q4

REPORT INFORMATION
  Report Type: Report from Study
  Country: US (occurrence: US)
  Receive Date: 20250919
  Receipt Date: 20251104
  Transmission Date: 20260117
  Serious: No
  Sender: MALLINCKRODT
  Company Number: US-MALLINCKRODT-MNK202505515

PATIENT
  Sex: Female

DRUGS (6)
  1. CORTICOTROPIN [Suspect]
     Active Substance: CORTICOTROPIN
     Indication: Nephrotic syndrome
     Dosage: 80 UNITS
     Dates: start: 20250825
  2. CORTICOTROPIN [Suspect]
     Active Substance: CORTICOTROPIN
     Indication: Nephrotic syndrome
  3. PREDNISONE [Suspect]
     Active Substance: PREDNISONE
     Indication: Abdominal discomfort
     Dosage: UNKNOWN
  4. PREDNISONE [Suspect]
     Active Substance: PREDNISONE
     Indication: Blood glucose increased
     Dosage: RESTARTED ON LOW DOSE
     Dates: start: 202508
  5. POTASSIUM [Suspect]
     Active Substance: POTASSIUM
     Indication: Blood potassium decreased
     Dosage: UNKNOWN
  6. LOSARTAN [Concomitant]
     Active Substance: LOSARTAN
     Indication: Fluid retention
     Dosage: UNKNOWN

REACTIONS (9)
  - Hypotension [Unknown]
  - Abdominal discomfort [Recovered/Resolved]
  - Protein urine present [Not Recovered/Not Resolved]
  - Blood potassium decreased [Unknown]
  - Blood glucose increased [Unknown]
  - Fatigue [Unknown]
  - Insomnia [Recovering/Resolving]
  - Injection site mass [Recovered/Resolved]
  - Fluid retention [Recovering/Resolving]

NARRATIVE: CASE EVENT DATE: 20250101
